FAERS Safety Report 5507734-6 (Version None)
Quarter: 2007Q4

REPORT INFORMATION
  Report Type: 
  Country: None (occurrence: None)
  Receive Date: 20071105
  Receipt Date: 20071105
  Transmission Date: 20080405
  Serious: Yes (Hospitalization)
  Sender: FDA-Public Use
  Company Number: None

PATIENT
  Age: 58 Year
  Sex: Male
  Weight: 117.9352 kg

DRUGS (21)
  1. TAXOTERE [Suspect]
     Indication: PROSTATE CANCER
     Dosage: 110 MG IV Q 21 DAYS
     Route: 042
  2. KETOCONAZOLE [Suspect]
     Indication: PROSTATE CANCER
     Dosage: 400 MG PO BID
     Route: 048
  3. ALBUTEROL [Concomitant]
  4. CYCLOBENZAPRINE HCL [Concomitant]
  5. DEXAMETHASONE [Concomitant]
  6. EXETIMEBE [Concomitant]
  7. LISINOPRIL [Concomitant]
  8. METOPROLOL TARTRATE [Concomitant]
  9. MOMETASONE NIFEDIPINE [Concomitant]
  10. NITROGLYCERIN [Concomitant]
  11. OMEPRAZOLE [Concomitant]
  12. TERAXZOSIN [Concomitant]
  13. TRAMADOL [Concomitant]
  14. KETOCONAZOLE [Concomitant]
  15. HYDROCORTISONE [Concomitant]
  16. VENLAFAZINE [Concomitant]
  17. FERROUS S04 [Concomitant]
  18. NPH ILETIN II [Concomitant]
  19. INSULIN ASPART [Concomitant]
  20. ISOSORBINE [Concomitant]
  21. PROCHLOROPERAZINE [Concomitant]

REACTIONS (23)
  - ABDOMINAL DISTENSION [None]
  - ASTHENIA [None]
  - BLOOD CHLORIDE DECREASED [None]
  - BLOOD CREATININE INCREASED [None]
  - BLOOD GLUCOSE INCREASED [None]
  - BLOOD PHOSPHORUS INCREASED [None]
  - BLOOD UREA INCREASED [None]
  - DIARRHOEA [None]
  - FEEDING TUBE COMPLICATION [None]
  - GASTROENTERITIS CLOSTRIDIAL [None]
  - HAEMOGLOBIN DECREASED [None]
  - HEART RATE INCREASED [None]
  - HYPOKALAEMIA [None]
  - ILEUS [None]
  - LARGE INTESTINAL OBSTRUCTION [None]
  - NAUSEA [None]
  - ORAL INTAKE REDUCED [None]
  - OXYGEN SATURATION DECREASED [None]
  - PLATELET COUNT INCREASED [None]
  - PNEUMONIA [None]
  - RESPIRATORY RATE INCREASED [None]
  - SMALL INTESTINAL OBSTRUCTION [None]
  - VOMITING [None]
